FAERS Safety Report 4965886-0 (Version None)
Quarter: 2006Q2

REPORT INFORMATION
  Report Type: 
  Country: None (occurrence: None)
  Receive Date: 20060405
  Receipt Date: 20060405
  Transmission Date: 20061013
  Serious: Yes (Other)
  Sender: FDA-Public Use
  Company Number: None

PATIENT
  Age: 45 Year
  Sex: Male
  Weight: 81.6475 kg

DRUGS (3)
  1. ZYRTEC [Suspect]
     Indication: RHINITIS
     Dosage: 1 TAB BID BID PO
     Route: 048
     Dates: start: 20060310, end: 20060401
  2. ZYRTEC [Suspect]
     Indication: SEASONAL ALLERGY
     Dosage: 1 TAB BID BID PO
     Route: 048
     Dates: start: 20060310, end: 20060401
  3. ZYPREXA [Concomitant]

REACTIONS (11)
  - AGITATION [None]
  - DIZZINESS [None]
  - DRUG DISPENSING ERROR [None]
  - DRY MOUTH [None]
  - HYPERCHOLESTEROLAEMIA [None]
  - INSOMNIA [None]
  - MEDICATION ERROR [None]
  - RESTLESSNESS [None]
  - SOMNOLENCE [None]
  - SPEECH DISORDER [None]
  - WEIGHT INCREASED [None]
